FAERS Safety Report 14698927 (Version 2)
Quarter: 2018Q2

REPORT INFORMATION
  Report Type: Spontaneous
  Country: US (occurrence: US)
  Receive Date: 20180330
  Receipt Date: 20180421
  Transmission Date: 20180711
  Serious: No
  Sender: FDA-Public Use
  Company Number: US-JNJFOC-20180325185

PATIENT
  Age: 25 Year
  Sex: Male
  Weight: 87.09 kg

DRUGS (1)
  1. RISPERDAL CONSTA [Suspect]
     Active Substance: RISPERIDONE
     Indication: PRODUCT USED FOR UNKNOWN INDICATION
     Route: 030
     Dates: start: 20130507

REACTIONS (1)
  - Product contamination with body fluid [Recovered/Resolved]

NARRATIVE: CASE EVENT DATE: 20180319
